FAERS Safety Report 8541406-9 (Version None)
Quarter: 2012Q3

REPORT INFORMATION
  Report Type: 
  Country: None (occurrence: None)
  Receive Date: 20120726
  Receipt Date: 20110914
  Transmission Date: 20120928
  Serious: No
  Sender: FDA-Public Use
  Company Number: US-ASTRAZENECA-2011SE55679

PATIENT
  Age: 48 Year
  Sex: Male

DRUGS (3)
  1. XANAX [Concomitant]
  2. SEROQUEL XR [Suspect]
     Route: 048
  3. PAXIL [Concomitant]

REACTIONS (11)
  - RADICULOPATHY [None]
  - ARTHRITIS [None]
  - ANXIETY [None]
  - INTERVERTEBRAL DISC PROTRUSION [None]
  - OSTEOARTHRITIS [None]
  - PAIN [None]
  - LETHARGY [None]
  - BENIGN PROSTATIC HYPERPLASIA [None]
  - MYOSITIS [None]
  - RADICULAR PAIN [None]
  - BACK PAIN [None]
